FAERS Safety Report 16091566 (Version 1)
Quarter: 2019Q1

REPORT INFORMATION
  Report Type: Report from Study
  Country: ES (occurrence: ES)
  Receive Date: 20190319
  Receipt Date: 20190319
  Transmission Date: 20190418
  Serious: Yes (Death)
  Sender: FDA-Public Use
  Company Number: ES-PFIZER INC-2019115351

PATIENT
  Sex: Male

DRUGS (7)
  1. MORPHINE [Concomitant]
     Active Substance: MORPHINE
     Dosage: UNK
     Route: 065
  2. MOVENTIG [Suspect]
     Active Substance: NALOXEGOL OXALATE
     Indication: CONSTIPATION
     Dosage: 50 MG, UNK
     Route: 065
     Dates: start: 20180426, end: 20181215
  3. MOVENTIG [Suspect]
     Active Substance: NALOXEGOL OXALATE
     Dosage: 25 MG, UNK
     Route: 065
     Dates: start: 20180308, end: 20180425
  4. PREGABALIN. [Suspect]
     Active Substance: PREGABALIN
     Dosage: 25 MG, DAILY
     Route: 065
     Dates: start: 20181105
  5. FENTANYL. [Concomitant]
     Active Substance: FENTANYL
     Dosage: UNK
     Route: 065
  6. OXYCODONE [Concomitant]
     Active Substance: OXYCODONE
     Dosage: UNK
     Route: 065
  7. LORMETAZEPAM [Suspect]
     Active Substance: LORMETAZEPAM
     Dosage: 1 MG, DAILY
     Route: 065
     Dates: start: 20171009

REACTIONS (2)
  - Disease progression [Fatal]
  - Overdose [Fatal]

NARRATIVE: CASE EVENT DATE: 20180426
